FAERS Safety Report 23377697 (Version 1)
Quarter: 2024Q1

REPORT INFORMATION
  Report Type: Spontaneous
  Country: US (occurrence: US)
  Receive Date: 20240108
  Receipt Date: 20240108
  Transmission Date: 20240409
  Serious: Yes (Other)
  Sender: FDA-Public Use
  Company Number: US-MYLANLABS-2023M1139056

PATIENT
  Age: 75 Year
  Sex: Female
  Weight: 99.773 kg

DRUGS (16)
  1. HYDROCHLOROTHIAZIDE\VALSARTAN [Suspect]
     Active Substance: HYDROCHLOROTHIAZIDE\VALSARTAN
     Indication: Hypertension
     Dosage: UNK (320/25 MILLIGRAM)
     Route: 065
     Dates: start: 20160201, end: 20160211
  2. HYDROCHLOROTHIAZIDE\VALSARTAN [Suspect]
     Active Substance: HYDROCHLOROTHIAZIDE\VALSARTAN
     Dosage: UNK (320/25 MILLIGRAM)
     Route: 065
     Dates: start: 20170117, end: 20170417
  3. HYDROCHLOROTHIAZIDE\VALSARTAN [Suspect]
     Active Substance: HYDROCHLOROTHIAZIDE\VALSARTAN
     Dosage: UNK (320/25 MILLIGRAM) PER DAY
     Route: 065
     Dates: start: 20180623, end: 20180921
  4. CARVEDILOL [Concomitant]
     Active Substance: CARVEDILOL
     Indication: Hypertension
     Dosage: 12.5 MILLIGRAM, BID
     Route: 065
     Dates: start: 2017
  5. GABAPENTIN [Concomitant]
     Active Substance: GABAPENTIN
     Indication: Neuropathy peripheral
     Dosage: 300 MILLIGRAM, QD
     Route: 065
     Dates: start: 2017
  6. SUCRALFATE [Concomitant]
     Active Substance: SUCRALFATE
     Indication: Abdominal discomfort
     Dosage: 1 MILLIGRAM, TID
     Route: 065
     Dates: start: 2016
  7. RABEPRAZOLE [Concomitant]
     Active Substance: RABEPRAZOLE
     Indication: Abdominal discomfort
     Dosage: 20 MILLIGRAM
     Route: 065
     Dates: start: 2015
  8. ALLOPURINOL [Concomitant]
     Active Substance: ALLOPURINOL
     Indication: Gout
     Dosage: UNK
     Route: 065
     Dates: start: 2015, end: 2019
  9. ALLOPURINOL [Concomitant]
     Active Substance: ALLOPURINOL
     Indication: Nephrolithiasis
  10. FOLIC ACID [Concomitant]
     Active Substance: FOLIC ACID
     Indication: Anaemia
     Dosage: 400 MILLIGRAM, QD
     Route: 065
     Dates: start: 2015
  11. VITAMIN B12 [Concomitant]
     Active Substance: CYANOCOBALAMIN
     Indication: Hypovitaminosis
     Dosage: 1000 MILLIGRAM, QD
     Route: 065
     Dates: start: 2015
  12. MAGNESIUM [Concomitant]
     Active Substance: MAGNESIUM
     Indication: Malnutrition
     Dosage: 500 MILLIGRAM, QD
     Route: 065
     Dates: start: 2015
  13. UBIQUINOL [Concomitant]
     Active Substance: UBIQUINOL
     Indication: Malnutrition
     Dosage: 1 DOSAGE FORM, QD
     Route: 065
     Dates: start: 2015
  14. PAPAYA [Concomitant]
     Active Substance: PAPAYA
     Indication: Malnutrition
     Dosage: 2 DOSAGE FORM, QD
     Route: 065
     Dates: start: 2015
  15. PROBIOTICS NOS [Concomitant]
     Active Substance: PROBIOTICS NOS
     Indication: Probiotic therapy
     Dosage: 1 DOSAGE FORM, QD
     Route: 065
     Dates: start: 2015
  16. HERBALS\TURMERIC [Concomitant]
     Active Substance: HERBALS\TURMERIC
     Indication: Malnutrition
     Dosage: 400 MILLIGRAM, QD
     Route: 065
     Dates: start: 2015

REACTIONS (1)
  - B-cell lymphoma [Unknown]

NARRATIVE: CASE EVENT DATE: 20181029
